FAERS Safety Report 21388293 (Version 3)
Quarter: 2022Q4

REPORT INFORMATION
  Report Type: Report from Study
  Country: CN (occurrence: CN)
  Receive Date: 20220928
  Receipt Date: 20221003
  Transmission Date: 20230113
  Serious: Yes (Hospitalization)
  Sender: FDA-Public Use
  Company Number: CN-PFIZER INC-PV202200070394

PATIENT
  Age: 69 Year
  Sex: Female
  Weight: 57 kg

DRUGS (87)
  1. PACLITAXEL [Suspect]
     Active Substance: PACLITAXEL
     Indication: Neoplasm
     Dosage: 122.4 MG, ONCE, INFUSION
     Route: 042
     Dates: start: 20211228, end: 20211228
  2. PACLITAXEL [Suspect]
     Active Substance: PACLITAXEL
     Dosage: 122.4 MG, ONCE, INFUSION
     Route: 042
     Dates: start: 20220106, end: 20220106
  3. PACLITAXEL [Suspect]
     Active Substance: PACLITAXEL
     Dosage: 122.4 MG, ONCE, INFUSION
     Route: 042
     Dates: start: 20220127, end: 20220127
  4. PACLITAXEL [Suspect]
     Active Substance: PACLITAXEL
     Dosage: 122.4 MG, ONCE, INFUSION
     Route: 042
     Dates: start: 20220215, end: 20220215
  5. PACLITAXEL [Suspect]
     Active Substance: PACLITAXEL
     Dosage: 122.4 MG, ONCE, INFUSION
     Route: 042
     Dates: start: 20220225, end: 20220225
  6. PACLITAXEL [Suspect]
     Active Substance: PACLITAXEL
     Dosage: 97.9 MG, ONCE, INFUSION
     Route: 042
     Dates: start: 20220304, end: 20220304
  7. PACLITAXEL [Suspect]
     Active Substance: PACLITAXEL
     Dosage: 97.9 MG, ONCE, INFUSION
     Route: 042
     Dates: start: 20220321, end: 20220321
  8. PACLITAXEL [Suspect]
     Active Substance: PACLITAXEL
     Dosage: 97.9 MG, ONCE, INFUSION
     Route: 042
     Dates: start: 20220328, end: 20220328
  9. PACLITAXEL [Suspect]
     Active Substance: PACLITAXEL
     Dosage: 97.9 MG, ONCE, INFUSION
     Route: 042
     Dates: start: 20220524, end: 20220524
  10. PACLITAXEL [Suspect]
     Active Substance: PACLITAXEL
     Dosage: 97.9 MG, ONCE, INFUSION
     Route: 042
     Dates: start: 20220531, end: 20220531
  11. PACLITAXEL [Suspect]
     Active Substance: PACLITAXEL
     Dosage: 97.9 MG, ONCE, INFUSION
     Route: 042
     Dates: start: 20220616, end: 20220616
  12. PACLITAXEL [Suspect]
     Active Substance: PACLITAXEL
     Dosage: 97.9 MG, ONCE, INFUSION
     Route: 042
     Dates: start: 20220623, end: 20220623
  13. CAPIVASERTIB [Suspect]
     Active Substance: CAPIVASERTIB
     Indication: Neoplasm
     Dosage: 480 MG, DAILY, TABLET
     Route: 048
     Dates: start: 20211217, end: 20211217
  14. CAPIVASERTIB [Suspect]
     Active Substance: CAPIVASERTIB
     Dosage: 480 MG, 2X/DAY, TABLET
     Route: 048
     Dates: start: 20211220, end: 20211223
  15. CAPIVASERTIB [Suspect]
     Active Substance: CAPIVASERTIB
     Dosage: 400 MG, 2X/DAY, TABLET
     Route: 048
     Dates: start: 20211229, end: 20220101
  16. CAPIVASERTIB [Suspect]
     Active Substance: CAPIVASERTIB
     Dosage: 400 MG, 2X/DAY, TABLET
     Route: 048
     Dates: start: 20220107, end: 20220110
  17. CAPIVASERTIB [Suspect]
     Active Substance: CAPIVASERTIB
     Dosage: 320 MG, 2X/DAY, TABLET
     Route: 048
     Dates: start: 20220128, end: 20220131
  18. CAPIVASERTIB [Suspect]
     Active Substance: CAPIVASERTIB
     Dosage: 320 MG, 2X/DAY, TABLET
     Route: 048
     Dates: start: 20220216, end: 20220219
  19. CAPIVASERTIB [Suspect]
     Active Substance: CAPIVASERTIB
     Dosage: 320 MG, 2X/DAY, TABLET
     Route: 048
     Dates: start: 20220226, end: 20220301
  20. CAPIVASERTIB [Suspect]
     Active Substance: CAPIVASERTIB
     Dosage: 320 MG, 2X/DAY, TABLET
     Route: 048
     Dates: start: 20220305, end: 20220308
  21. CAPIVASERTIB [Suspect]
     Active Substance: CAPIVASERTIB
     Dosage: 320 MG, 2X/DAY, TABLET
     Route: 048
     Dates: start: 20220322, end: 20220325
  22. CAPIVASERTIB [Suspect]
     Active Substance: CAPIVASERTIB
     Dosage: 320 MG, 2X/DAY, TABLET
     Route: 048
     Dates: start: 20220329, end: 20220401
  23. CAPIVASERTIB [Suspect]
     Active Substance: CAPIVASERTIB
     Dosage: 320 MG, 2X/DAY, TABLET
     Route: 048
     Dates: start: 20220407, end: 20220410
  24. CAPIVASERTIB [Suspect]
     Active Substance: CAPIVASERTIB
     Dosage: 320 MG, 2X/DAY, TABLET
     Route: 048
     Dates: start: 20220419, end: 20220422
  25. CAPIVASERTIB [Suspect]
     Active Substance: CAPIVASERTIB
     Dosage: 320 MG, 2X/DAY, TABLET
     Route: 048
     Dates: start: 20220426, end: 20220429
  26. CAPIVASERTIB [Suspect]
     Active Substance: CAPIVASERTIB
     Dosage: 320 MG, 2X/DAY, TABLET
     Route: 048
     Dates: start: 20220503, end: 20220506
  27. CAPIVASERTIB [Suspect]
     Active Substance: CAPIVASERTIB
     Dosage: 320 MG, 2X/DAY, TABLET
     Route: 048
     Dates: start: 20220518, end: 20220521
  28. CAPIVASERTIB [Suspect]
     Active Substance: CAPIVASERTIB
     Dosage: 320 MG, 2X/DAY, TABLET
     Route: 048
     Dates: start: 20220525, end: 20220528
  29. CAPIVASERTIB [Suspect]
     Active Substance: CAPIVASERTIB
     Dosage: 320 MG, 2X/DAY, TABLET
     Route: 048
     Dates: start: 20220601, end: 20220604
  30. CAPIVASERTIB [Suspect]
     Active Substance: CAPIVASERTIB
     Dosage: 320 MG, 2X/DAY, TABLET
     Route: 048
     Dates: start: 20220617, end: 20220620
  31. CAPIVASERTIB [Suspect]
     Active Substance: CAPIVASERTIB
     Dosage: 320 MG, 2X/DAY, TABLET
     Route: 048
     Dates: start: 20220624, end: 20220627
  32. CALCIUM GLUCONATE [Concomitant]
     Active Substance: CALCIUM GLUCONATE
     Indication: Hypocalcaemia
     Dosage: 4 G, DAILY
     Route: 042
     Dates: start: 20220625, end: 20220625
  33. CALCIUM GLUCONATE [Concomitant]
     Active Substance: CALCIUM GLUCONATE
     Dosage: 2 G, DAILY
     Route: 042
     Dates: start: 20220630, end: 20220630
  34. DEXTROSE\SODIUM CHLORIDE [Concomitant]
     Active Substance: DEXTROSE\SODIUM CHLORIDE
  35. GLUCOSE INJECTION MP [Concomitant]
  36. ENTECAVIR [Concomitant]
     Active Substance: ENTECAVIR
     Indication: Chronic hepatitis B
     Dosage: 5 MG, DAILY
     Route: 048
     Dates: start: 202007
  37. METFORMIN HYDROCHLORIDE [Concomitant]
     Active Substance: METFORMIN HYDROCHLORIDE
     Indication: Hyperglycaemia
     Dosage: 5 G, DAILY
     Route: 048
     Dates: start: 20211220, end: 20211220
  38. METFORMIN HYDROCHLORIDE [Concomitant]
     Active Substance: METFORMIN HYDROCHLORIDE
     Dosage: 5 G, DAILY
     Route: 048
     Dates: start: 20211221, end: 20211221
  39. METFORMIN HYDROCHLORIDE [Concomitant]
     Active Substance: METFORMIN HYDROCHLORIDE
     Dosage: 5 G, AS NEEDED
     Route: 048
     Dates: start: 20211222, end: 20220626
  40. METFORMIN HYDROCHLORIDE [Concomitant]
     Active Substance: METFORMIN HYDROCHLORIDE
     Dosage: 5 G, DAILY
     Route: 048
     Dates: start: 20220627, end: 20220627
  41. GRANISETRON HYDROCHLORIDE [Concomitant]
     Active Substance: GRANISETRON HYDROCHLORIDE
     Indication: Prophylaxis of nausea and vomiting
     Dosage: 3 MG, DAILY
     Route: 042
     Dates: start: 20220531, end: 20220531
  42. GRANISETRON HYDROCHLORIDE [Concomitant]
     Active Substance: GRANISETRON HYDROCHLORIDE
     Dosage: 3 MG, DAILY
     Route: 042
     Dates: start: 20220616, end: 20220616
  43. GRANISETRON HYDROCHLORIDE [Concomitant]
     Active Substance: GRANISETRON HYDROCHLORIDE
     Dosage: 3 MG, DAILY
     Route: 042
     Dates: start: 20220623, end: 20220623
  44. OMEPRAZOLE SODIUM [Concomitant]
     Active Substance: OMEPRAZOLE SODIUM
     Indication: Hypersensitivity
     Dosage: 40 MG, DAILY
     Route: 042
     Dates: start: 20220531, end: 20220531
  45. OMEPRAZOLE SODIUM [Concomitant]
     Active Substance: OMEPRAZOLE SODIUM
     Dosage: 4 MG, DAILY
     Route: 042
     Dates: start: 20220616, end: 20220616
  46. OMEPRAZOLE SODIUM [Concomitant]
     Active Substance: OMEPRAZOLE SODIUM
     Dosage: 4 MG, DAILY
     Route: 042
     Dates: start: 20220623, end: 20220623
  47. DEXAMETHASONE SODIUM PHOSPHATE [Concomitant]
     Active Substance: DEXAMETHASONE SODIUM PHOSPHATE
     Indication: Hypersensitivity
     Dosage: 20 MG, DAILY
     Route: 042
     Dates: start: 20211228, end: 20211228
  48. DEXAMETHASONE SODIUM PHOSPHATE [Concomitant]
     Active Substance: DEXAMETHASONE SODIUM PHOSPHATE
     Dosage: 20 MG, DAILY
     Route: 042
     Dates: start: 20220106, end: 20220106
  49. DEXAMETHASONE SODIUM PHOSPHATE [Concomitant]
     Active Substance: DEXAMETHASONE SODIUM PHOSPHATE
     Dosage: 20 MG, DAILY
     Route: 042
     Dates: start: 20220127, end: 20220127
  50. DEXAMETHASONE SODIUM PHOSPHATE [Concomitant]
     Active Substance: DEXAMETHASONE SODIUM PHOSPHATE
     Dosage: 20 MG, DAILY
     Route: 042
     Dates: start: 20220215, end: 20220215
  51. DEXAMETHASONE SODIUM PHOSPHATE [Concomitant]
     Active Substance: DEXAMETHASONE SODIUM PHOSPHATE
     Dosage: 20 MG, DAILY
     Route: 042
     Dates: start: 20220225, end: 20220225
  52. DEXAMETHASONE SODIUM PHOSPHATE [Concomitant]
     Active Substance: DEXAMETHASONE SODIUM PHOSPHATE
     Dosage: 20 MG, DAILY
     Route: 042
     Dates: start: 20220304, end: 20220304
  53. DEXAMETHASONE SODIUM PHOSPHATE [Concomitant]
     Active Substance: DEXAMETHASONE SODIUM PHOSPHATE
     Dosage: 20 MG, DAILY
     Route: 042
     Dates: start: 20220321, end: 20220321
  54. DEXAMETHASONE SODIUM PHOSPHATE [Concomitant]
     Active Substance: DEXAMETHASONE SODIUM PHOSPHATE
     Dosage: 20 MG, DAILY
     Route: 042
     Dates: start: 20220328, end: 20220328
  55. DEXAMETHASONE SODIUM PHOSPHATE [Concomitant]
     Active Substance: DEXAMETHASONE SODIUM PHOSPHATE
     Dosage: 20 MG, DAILY
     Route: 042
     Dates: start: 20220524, end: 20220524
  56. DEXAMETHASONE SODIUM PHOSPHATE [Concomitant]
     Active Substance: DEXAMETHASONE SODIUM PHOSPHATE
     Dosage: 20 MG, DAILY
     Route: 042
     Dates: start: 20220531, end: 20220531
  57. DEXAMETHASONE SODIUM PHOSPHATE [Concomitant]
     Active Substance: DEXAMETHASONE SODIUM PHOSPHATE
     Dosage: 5 MG, DAILY
     Route: 042
     Dates: start: 20220616, end: 20220616
  58. DEXAMETHASONE SODIUM PHOSPHATE [Concomitant]
     Active Substance: DEXAMETHASONE SODIUM PHOSPHATE
     Dosage: 5 MG, DAILY
     Route: 042
     Dates: start: 20220623, end: 20220623
  59. PROMETHAZINE HYDROCHLORIDE [Concomitant]
     Active Substance: PROMETHAZINE HYDROCHLORIDE
     Indication: Hypersensitivity
     Dosage: 25 MG, DAILY
     Route: 042
     Dates: start: 20211228, end: 20211228
  60. PROMETHAZINE HYDROCHLORIDE [Concomitant]
     Active Substance: PROMETHAZINE HYDROCHLORIDE
     Dosage: 25 MG, DAILY
     Route: 042
     Dates: start: 20220106, end: 20220106
  61. PROMETHAZINE HYDROCHLORIDE [Concomitant]
     Active Substance: PROMETHAZINE HYDROCHLORIDE
     Dosage: 25 MG, DAILY
     Route: 042
     Dates: start: 20220127, end: 20220127
  62. PROMETHAZINE HYDROCHLORIDE [Concomitant]
     Active Substance: PROMETHAZINE HYDROCHLORIDE
     Dosage: 25 MG, DAILY
     Route: 042
     Dates: start: 20220215, end: 20220215
  63. PROMETHAZINE HYDROCHLORIDE [Concomitant]
     Active Substance: PROMETHAZINE HYDROCHLORIDE
     Dosage: 25 MG, DAILY
     Route: 042
     Dates: start: 20220225, end: 20220225
  64. PROMETHAZINE HYDROCHLORIDE [Concomitant]
     Active Substance: PROMETHAZINE HYDROCHLORIDE
     Dosage: 25 MG, DAILY
     Route: 042
     Dates: start: 20220304, end: 20220304
  65. PROMETHAZINE HYDROCHLORIDE [Concomitant]
     Active Substance: PROMETHAZINE HYDROCHLORIDE
     Dosage: 25 MG, DAILY
     Route: 042
     Dates: start: 20220321, end: 20220321
  66. PROMETHAZINE HYDROCHLORIDE [Concomitant]
     Active Substance: PROMETHAZINE HYDROCHLORIDE
     Dosage: 25 MG, DAILY
     Route: 042
     Dates: start: 20220328, end: 20220328
  67. PROMETHAZINE HYDROCHLORIDE [Concomitant]
     Active Substance: PROMETHAZINE HYDROCHLORIDE
     Dosage: 25 MG, DAILY
     Route: 042
     Dates: start: 20220504, end: 20220504
  68. PROMETHAZINE HYDROCHLORIDE [Concomitant]
     Active Substance: PROMETHAZINE HYDROCHLORIDE
     Dosage: 25 MG, DAILY
     Route: 042
     Dates: start: 20220531, end: 20220531
  69. PROMETHAZINE HYDROCHLORIDE [Concomitant]
     Active Substance: PROMETHAZINE HYDROCHLORIDE
     Dosage: 25 MG, DAILY
     Route: 042
     Dates: start: 20220616, end: 20220616
  70. PROMETHAZINE HYDROCHLORIDE [Concomitant]
     Active Substance: PROMETHAZINE HYDROCHLORIDE
     Dosage: 25 MG, DAILY
     Route: 042
     Dates: start: 20220623, end: 20220623
  71. MONTMORILLONITE [Concomitant]
     Active Substance: MONTMORILLONITE
     Indication: Diarrhoea
     Dosage: 3 G, 3X/DAY
     Route: 048
     Dates: start: 20220626, end: 20220629
  72. INDOMETHACIN [Concomitant]
     Active Substance: INDOMETHACIN
     Indication: Pyrexia
     Dosage: 50 MG, DAILY
     Route: 054
     Dates: start: 20220625, end: 20220625
  73. MOXIFLOXACIN HYDROCHLORIDE [Concomitant]
     Active Substance: MOXIFLOXACIN HYDROCHLORIDE
     Indication: Infection prophylaxis
     Dosage: 400 MG, DAILY
     Route: 048
     Dates: start: 20220625, end: 20220627
  74. POTASSIUM CHLORIDE [Concomitant]
     Active Substance: POTASSIUM CHLORIDE
     Indication: Hypokalaemia
     Dosage: 1750 MG, DAILY
     Route: 042
     Dates: start: 20220625, end: 20220625
  75. POTASSIUM CHLORIDE [Concomitant]
     Active Substance: POTASSIUM CHLORIDE
     Dosage: 750 MG, DAILY
     Route: 042
     Dates: start: 20220626, end: 20220626
  76. POTASSIUM CHLORIDE [Concomitant]
     Active Substance: POTASSIUM CHLORIDE
     Dosage: 1 G, 2X/DAY
     Route: 048
     Dates: start: 20220626, end: 20220627
  77. POTASSIUM CHLORIDE [Concomitant]
     Active Substance: POTASSIUM CHLORIDE
     Dosage: 1.5 G, DAILY
     Route: 042
     Dates: start: 20220627, end: 20220627
  78. VITAMIN C [Concomitant]
     Active Substance: ASCORBIC ACID
     Indication: Dehydration
     Dosage: 1 G, DAILY
     Route: 042
     Dates: start: 20220625, end: 20220625
  79. VITAMIN C [Concomitant]
     Active Substance: ASCORBIC ACID
     Dosage: 1 G, DAILY
     Route: 042
     Dates: start: 20220620, end: 20220630
  80. MAGNESIUM SULFATE [Concomitant]
     Active Substance: MAGNESIUM SULFATE
     Indication: Hypomagnesaemia
     Dosage: 2.5 G, DAILY
     Route: 042
     Dates: start: 20220626, end: 20220626
  81. ADEMETIONINE BUTANEDISULFONATE [Concomitant]
     Active Substance: ADEMETIONINE BUTANEDISULFONATE
     Indication: Dehydration
     Dosage: 1 G, DAILY
     Route: 042
     Dates: start: 20220626, end: 20220626
  82. GLUTATHIONE [Concomitant]
     Active Substance: GLUTATHIONE
     Indication: Blood bilirubin increased
     Dosage: 2.4 G, DAILY
     Route: 042
     Dates: start: 20220626, end: 20220626
  83. COMPOSITE POTASSIUM HYDROGEN PHOSPHATE [Concomitant]
     Indication: Hypophosphataemia
     Dosage: 2 ML, DAILY
     Route: 042
     Dates: start: 20220626, end: 20220626
  84. FUROSEMIDE [Concomitant]
     Active Substance: FUROSEMIDE
     Indication: Dehydration
     Dosage: 10 MG, DAILY
     Route: 042
     Dates: start: 20220626, end: 20220626
  85. FUROSEMIDE [Concomitant]
     Active Substance: FUROSEMIDE
     Dosage: 20 MG, DAILY
     Route: 042
     Dates: start: 20220627, end: 20220627
  86. ERYTHROPOIETIN [Concomitant]
     Active Substance: ERYTHROPOIETIN
     Indication: Anaemia
     Dosage: 40000 IU, DAILY
     Route: 042
     Dates: start: 20220626, end: 20220626
  87. DENOSUMAB [Concomitant]
     Active Substance: DENOSUMAB
     Indication: Organ preservation
     Dosage: 120 MG, MONTHLY
     Route: 058
     Dates: start: 202007

REACTIONS (2)
  - Hyperglycaemia [Recovered/Resolved]
  - Device related infection [Recovered/Resolved]

NARRATIVE: CASE EVENT DATE: 20220627
